FAERS Safety Report 8008588-9 (Version None)
Quarter: 2011Q4

REPORT INFORMATION
  Report Type: 
  Country: None (occurrence: None)
  Receive Date: 20111227
  Receipt Date: 20111212
  Transmission Date: 20120403
  Serious: Yes (Hospitalization, Other)
  Sender: FDA-Public Use
  Company Number: JP-ROCHE-1023781

PATIENT
  Sex: Female

DRUGS (19)
  1. SEREVENT [Concomitant]
     Dates: start: 20070723, end: 20110120
  2. ALBUTEROL SULFATE [Concomitant]
     Dates: start: 20070723
  3. OMALIZUMAB [Suspect]
     Dates: start: 20110114
  4. PULMICORT [Concomitant]
     Dates: start: 20070723, end: 20110120
  5. THEOPHYLLINE [Concomitant]
     Dates: start: 20070723
  6. AMARYL [Concomitant]
     Dates: start: 20101119
  7. THEOPHYLLINE [Concomitant]
  8. NORVASC [Concomitant]
     Dates: start: 20101019
  9. FAMOTIDINE [Concomitant]
     Dates: start: 20101119
  10. OMALIZUMAB [Suspect]
     Dates: start: 20110311
  11. ALVESCO [Concomitant]
     Dates: start: 20080711, end: 20110120
  12. HOKUNALIN [Concomitant]
     Dates: start: 20070723, end: 20110217
  13. URSO 250 [Concomitant]
     Dates: start: 20101119
  14. ITRACONAZOLE [Concomitant]
     Dates: start: 20101119, end: 20101217
  15. SYMBICORT [Concomitant]
     Dates: start: 20110121
  16. CRESTOR [Concomitant]
     Dates: start: 20101019
  17. OMALIZUMAB [Suspect]
     Indication: ASTHMA
     Route: 058
     Dates: start: 20101119
  18. MONTELUKAST SODIUM [Concomitant]
     Dates: start: 20070723
  19. OMALIZUMAB [Suspect]
     Dates: start: 20110204

REACTIONS (4)
  - ASPARTATE AMINOTRANSFERASE INCREASED [None]
  - ALANINE AMINOTRANSFERASE INCREASED [None]
  - ASTHMA [None]
  - LIVER DISORDER [None]
